FAERS Safety Report 16850513 (Version 1)
Quarter: 2019Q3

REPORT INFORMATION
  Report Type: Spontaneous
  Country: US (occurrence: US)
  Receive Date: 20190925
  Receipt Date: 20190925
  Transmission Date: 20191005
  Serious: No
  Sender: FDA-Public Use
  Company Number: US-UPSHER-SMITH LABORATORIES, LLC-2018USL00438

PATIENT
  Age: 57 Year
  Sex: Male
  Weight: 63.49 kg

DRUGS (6)
  1. BACLOFEN. [Suspect]
     Active Substance: BACLOFEN
     Dosage: 20 MG, 1X/DAY BEFORE BEDTIME
     Route: 048
     Dates: start: 201808, end: 20180831
  2. BACLOFEN. [Suspect]
     Active Substance: BACLOFEN
     Dosage: 20 MG, 1X/DAY BEFORE BEDTIME
     Route: 048
     Dates: start: 201806, end: 201808
  3. BACLOFEN. [Suspect]
     Active Substance: BACLOFEN
     Indication: MUSCLE SPASMS
     Dosage: 80 MG, 1X/DAY
     Route: 048
  4. BACLOFEN. [Suspect]
     Active Substance: BACLOFEN
     Dosage: 20 MG, 1X/DAY BEFORE BEDTIME
     Route: 048
  5. UNSPECIFIED VITAMINS [Concomitant]
     Active Substance: VITAMINS
  6. BACLOFEN. [Suspect]
     Active Substance: BACLOFEN
     Dosage: 40 MG, 1X/DAY BEFORE BEDTIME
     Route: 048
     Dates: start: 20180901

REACTIONS (5)
  - Gait disturbance [Unknown]
  - Drug ineffective [Not Recovered/Not Resolved]
  - Fatigue [Unknown]
  - Pain in extremity [Recovering/Resolving]
  - Muscle spasms [Recovering/Resolving]

NARRATIVE: CASE EVENT DATE: 201806
